FAERS Safety Report 6471199-0 (Version None)
Quarter: 2009Q4

REPORT INFORMATION
  Report Type: 
  Country: None (occurrence: None)
  Receive Date: 20091203
  Receipt Date: 20080613
  Transmission Date: 20100525
  Serious: Yes (Other)
  Sender: FDA-Public Use
  Company Number: CA-ELI_LILLY_AND_COMPANY-CA200802002098

PATIENT
  Sex: Female
  Weight: 40 kg

DRUGS (6)
  1. FORTEO [Suspect]
     Indication: OSTEOPOROSIS
     Dosage: 20 UG, DAILY (1/D)
     Route: 058
     Dates: start: 20080111, end: 20080204
  2. FORTEO [Suspect]
     Dosage: 20 UG, DAILY (1/D)
     Route: 058
     Dates: start: 20080318, end: 20080418
  3. MULTIVITAMINS, COMBINATIONS [Concomitant]
  4. CALCIUM                                 /N/A/ [Concomitant]
     Dosage: 1200 MG, DAILY (1/D)
     Dates: start: 20080401
  5. VITAMIN D [Concomitant]
     Dosage: 600 IU, DAILY (1/D)
  6. VITAMIN D [Concomitant]
     Dosage: 800 IU, DAILY (1/D)
     Dates: start: 20080401

REACTIONS (8)
  - ASTHENIA [None]
  - CEREBROVASCULAR ACCIDENT [None]
  - DECREASED APPETITE [None]
  - FATIGUE [None]
  - HEADACHE [None]
  - NAUSEA [None]
  - SINUSITIS [None]
  - VOMITING [None]
